FAERS Safety Report 9524854 (Version 4)
Quarter: 2014Q2

REPORT INFORMATION
  Report Type: Spontaneous
  Country: JP (occurrence: JP)
  Receive Date: 20130916
  Receipt Date: 20140410
  Transmission Date: 20141212
  Serious: Yes (Other)
  Sender: FDA-Public Use
  Company Number: JP-AMGEN-JPNSP2013064573

PATIENT
  Age: 49 Year
  Sex: Female
  Weight: 48 kg

DRUGS (10)
  1. RANMARK [Suspect]
     Indication: METASTASES TO BONE
     Dosage: 120 MG, UNK
     Route: 058
     Dates: start: 20120809, end: 20131212
  2. ZOMETA [Suspect]
     Indication: METASTASES TO BONE
     Dosage: 4 MG, QD
     Route: 042
     Dates: start: 20110127, end: 20120705
  3. ZOLADEX                            /00732101/ [Concomitant]
     Indication: BREAST CANCER
     Dosage: 3.6 MG, QD
     Route: 058
     Dates: start: 200301, end: 20100930
  4. ZOLADEX                            /00732101/ [Concomitant]
     Indication: POSTOPERATIVE CARE
  5. ZOLADEX                            /00732101/ [Concomitant]
     Indication: BREAST CANCER RECURRENT
  6. NOLVADEX                           /00388701/ [Concomitant]
     Indication: BREAST CANCER
     Dosage: 20 MG, QD
     Route: 048
     Dates: start: 200301, end: 20100116
  7. NOLVADEX                           /00388701/ [Concomitant]
     Indication: POSTOPERATIVE CARE
  8. NOLVADEX                           /00388701/ [Concomitant]
     Indication: BREAST CANCER RECURRENT
  9. PACLITAXEL [Concomitant]
     Indication: METASTASES TO BONE
     Dosage: 100 MG, QD
     Route: 042
     Dates: start: 20110317, end: 20111124
  10. ARIMIDEX [Concomitant]
     Indication: METASTASES TO BONE
     Dosage: 1 MG, QD
     Route: 048
     Dates: start: 20120719

REACTIONS (1)
  - Osteonecrosis of jaw [Recovered/Resolved with Sequelae]
